FAERS Safety Report 17187517 (Version 3)
Quarter: 2020Q1

REPORT INFORMATION
  Report Type: Report from Study
  Country: None (occurrence: CO)
  Receive Date: 20191220
  Receipt Date: 20200207
  Transmission Date: 20200409
  Serious: Yes (Other)
  Sender: FDA-Public Use
  Company Number: CO-ABBVIE-19K-036-3204174-00

PATIENT
  Age: 81 Year
  Sex: Male
  Weight: 47 kg

DRUGS (2)
  1. HUMIRA [Suspect]
     Active Substance: ADALIMUMAB
     Indication: PSORIASIS
     Route: 058
     Dates: start: 20171116
  2. HUMIRA [Suspect]
     Active Substance: ADALIMUMAB
     Indication: PSORIASIS
     Route: 058

REACTIONS (4)
  - Memory impairment [Unknown]
  - Deafness [Not Recovered/Not Resolved]
  - Psoriasis [Not Recovered/Not Resolved]
  - Eye disorder [Unknown]

NARRATIVE: CASE EVENT DATE: 201910
